FAERS Safety Report 5172021-5 (Version None)
Quarter: 2006Q4

REPORT INFORMATION
  Report Type: 
  Country: None (occurrence: None)
  Receive Date: 20061205
  Receipt Date: 20061116
  Transmission Date: 20070319
  Serious: No
  Sender: FDA-Public Use
  Company Number: TPA2006A02068

PATIENT
  Age: 89 Year
  Sex: Female
  Weight: 86.1834 kg

DRUGS (5)
  1. ACTOS [Suspect]
     Indication: DIABETES MELLITUS NON-INSULIN-DEPENDENT
     Dosage: 30 MG, 1 IN 1 D, PER ORAL
     Route: 048
  2. GLUMETAZ (ALL OTHER THERAPEUTIC PRODUCTS) [Suspect]
     Indication: DIABETES MELLITUS
     Dosage: 500 MG, 1 IN 1 D, PER ORAL
     Route: 048
     Dates: start: 20061111
  3. TOPROL (ALL OTHER THERAPEUTIC PRODUCTS) [Concomitant]
  4. THYROID TAB [Concomitant]
  5. ASPIRIN [Concomitant]

REACTIONS (2)
  - DRUG INEFFECTIVE [None]
  - EXPIRED DRUG ADMINISTERED [None]
